FAERS Safety Report 13776194 (Version 2)
Quarter: 2017Q3

REPORT INFORMATION
  Report Type: Spontaneous
  Country: FR (occurrence: FR)
  Receive Date: 20170721
  Receipt Date: 20170822
  Transmission Date: 20171127
  Serious: Yes (Life-Threatening, Other)
  Sender: FDA-Public Use
  Company Number: FR-TEVA-788037ROM

PATIENT
  Sex: Female
  Weight: 50 kg

DRUGS (10)
  1. AVASTIN [Concomitant]
     Active Substance: BEVACIZUMAB
     Dosage: CYCLE 3 DAY 1 OF PROTOCOL AVASTIN-FOLFOX
     Route: 042
     Dates: start: 20170630, end: 20170630
  2. PRIMPERAN [Concomitant]
     Active Substance: METOCLOPRAMIDE HYDROCHLORIDE
     Route: 042
     Dates: start: 20170630, end: 20170630
  3. ZOPHREN [Concomitant]
     Active Substance: ONDANSETRON
     Route: 042
     Dates: start: 20170630, end: 20170630
  4. AVASTIN [Concomitant]
     Active Substance: BEVACIZUMAB
     Indication: NEUROENDOCRINE CARCINOMA
     Route: 042
     Dates: start: 20150518
  5. PRIMPERAN [Concomitant]
     Active Substance: METOCLOPRAMIDE HYDROCHLORIDE
     Indication: NEUROENDOCRINE TUMOUR
     Route: 042
     Dates: start: 20150518
  6. ELVORINE [Concomitant]
     Active Substance: LEUCOVORIN CALCIUM
     Indication: NEUROENDOCRINE TUMOUR
     Route: 042
     Dates: start: 20150518
  7. OXALIPLATINE TEVA [Suspect]
     Active Substance: OXALIPLATIN
     Indication: NEUROENDOCRINE CARCINOMA
     Dosage: ONCE
     Route: 042
     Dates: start: 20150518
  8. ZOPHREN [Concomitant]
     Active Substance: ONDANSETRON
     Indication: NEUROENDOCRINE TUMOUR
     Route: 042
     Dates: start: 20150518
  9. OXALIPLATINE TEVA [Suspect]
     Active Substance: OXALIPLATIN
     Dosage: CYCLE 3 DAY 1 OF PROTOCOL AVASTIN-FOLFOX
     Route: 042
     Dates: start: 20170630, end: 20170630
  10. ELVORINE [Concomitant]
     Active Substance: LEUCOVORIN CALCIUM
     Route: 042
     Dates: start: 20170630, end: 20170630

REACTIONS (3)
  - Hypersensitivity [Unknown]
  - Back pain [Recovered/Resolved]
  - Headache [Recovered/Resolved]

NARRATIVE: CASE EVENT DATE: 20170630
